FAERS Safety Report 6348333-6 (Version None)
Quarter: 2009Q3

REPORT INFORMATION
  Report Type: 
  Country: None (occurrence: None)
  Receive Date: 20090908
  Receipt Date: 20090820
  Transmission Date: 20100115
  Serious: Yes (Hospitalization)
  Sender: FDA-Public Use
  Company Number: 2009AL000464

PATIENT
  Age: 93 Year
  Sex: Female

DRUGS (38)
  1. DIGOXIN [Suspect]
     Dosage: 0.125MG, DAILY, PO
     Route: 048
  2. DYAZIDE [Concomitant]
  3. ACIPHEX [Concomitant]
  4. FOSAMOX [Concomitant]
  5. DILTIAZEM [Concomitant]
  6. COSOPT [Concomitant]
  7. TRIAMTERENE [Concomitant]
  8. POTASSIUM CHLORIDE [Concomitant]
  9. PROTONIX [Concomitant]
  10. FUROSEMIDE [Concomitant]
  11. NAMENDA [Concomitant]
  12. COREG [Concomitant]
  13. ISOSORBIDE [Concomitant]
  14. NITROGLYCERIN [Concomitant]
  15. TRAVATAN [Concomitant]
  16. LORAZEP [Concomitant]
  17. BIOTENE [Concomitant]
  18. ALENDRONATE SODIUM [Concomitant]
  19. ASPIRIN [Concomitant]
  20. OMEPRAZOLE [Concomitant]
  21. SIMETHICONE [Concomitant]
  22. CARVEDILOL [Concomitant]
  23. IQUIX [Concomitant]
  24. LORAZEPAM [Concomitant]
  25. COUMADIN [Concomitant]
  26. IMDUR [Concomitant]
  27. METAMUCIL [Concomitant]
  28. MYLANTA [Concomitant]
  29. PROLOSEC [Concomitant]
  30. REFRESH PLUS [Concomitant]
  31. SIMETHICONE [Concomitant]
  32. TEARS NATURALE [Concomitant]
  33. VESICARE [Concomitant]
  34. CALIUM WITH VIAMIN D [Concomitant]
  35. SALINE NASAL [Concomitant]
  36. DETROL LA [Concomitant]
  37. LEVAQUIN [Concomitant]
  38. .. [Concomitant]

REACTIONS (23)
  - ATRIAL FIBRILLATION [None]
  - ATRIAL FLUTTER [None]
  - BRADYCARDIA [None]
  - CARDIOACTIVE DRUG LEVEL INCREASED [None]
  - CEREBRAL HAEMORRHAGE [None]
  - DISEASE COMPLICATION [None]
  - ECONOMIC PROBLEM [None]
  - EPISTAXIS [None]
  - FALL [None]
  - FATIGUE [None]
  - HEADACHE [None]
  - HYPERTENSION [None]
  - ILL-DEFINED DISORDER [None]
  - INTERNATIONAL NORMALISED RATIO INCREASED [None]
  - LETHARGY [None]
  - MULTIPLE INJURIES [None]
  - OSTEOPOROSIS [None]
  - PAIN [None]
  - PROTHROMBIN TIME PROLONGED [None]
  - RADIUS FRACTURE [None]
  - THERAPEUTIC AGENT TOXICITY [None]
  - TYPE 2 DIABETES MELLITUS [None]
  - WRIST FRACTURE [None]
